FAERS Safety Report 18718313 (Version 1)
Quarter: 2021Q1

REPORT INFORMATION
  Report Type: Report from Study
  Country: CA (occurrence: CA)
  Receive Date: 20210108
  Receipt Date: 20210108
  Transmission Date: 20210419
  Serious: Yes (Other)
  Sender: FDA-Public Use
  Company Number: CA-TAKEDA-2021TUS000862

PATIENT
  Age: 76 Year
  Sex: Female

DRUGS (2)
  1. IXAZOMIB [Suspect]
     Active Substance: IXAZOMIB
     Indication: PLASMA CELL MYELOMA
     Dosage: 3 MILLIGRAM
     Route: 048
     Dates: start: 20201214, end: 20201231
  2. DEXAMETHASONE. [Suspect]
     Active Substance: DEXAMETHASONE
     Indication: PLASMA CELL MYELOMA
     Dosage: UNK
     Route: 065
     Dates: start: 20201214, end: 20201231

REACTIONS (7)
  - Dyspnoea [Unknown]
  - Off label use [Unknown]
  - Abdominal pain [Unknown]
  - Dizziness [Unknown]
  - Nausea [Unknown]
  - Neuropathy peripheral [Unknown]
  - Headache [Unknown]

NARRATIVE: CASE EVENT DATE: 20201214
